FAERS Safety Report 5289887-0 (Version None)
Quarter: 2007Q2

REPORT INFORMATION
  Report Type: 
  Country: None (occurrence: None)
  Receive Date: 20070406
  Receipt Date: 20070320
  Transmission Date: 20071010
  Serious: Yes (Other)
  Sender: FDA-Public Use
  Company Number: DE-GENENTECH-232975

PATIENT
  Sex: Female
  Weight: 63 kg

DRUGS (4)
  1. AVASTIN [Suspect]
     Indication: COLON CANCER METASTATIC
     Dosage: 5 MG/KG, UNK
     Route: 042
     Dates: start: 20061009, end: 20061009
  2. OXALIPLATIN [Concomitant]
     Indication: DRUG USE FOR UNKNOWN INDICATION
     Route: 042
     Dates: start: 20061009, end: 20061009
  3. LEUCOVORIN CALCIUM [Concomitant]
     Indication: DRUG USE FOR UNKNOWN INDICATION
     Route: 042
     Dates: start: 20061009, end: 20061009
  4. FLUOROURACIL [Concomitant]
     Indication: DRUG USE FOR UNKNOWN INDICATION
     Route: 042
     Dates: start: 20061009, end: 20061009

REACTIONS (6)
  - BLOOD PRESSURE DECREASED [None]
  - CARDIOVASCULAR INSUFFICIENCY [None]
  - GENERAL PHYSICAL CONDITION ABNORMAL [None]
  - HAEMOGLOBIN DECREASED [None]
  - RESTLESSNESS [None]
  - SPLENIC RUPTURE [None]
